FAERS Safety Report 7120507-6 (Version None)
Quarter: 2010Q4

REPORT INFORMATION
  Report Type: 
  Country: None (occurrence: None)
  Receive Date: 20101119
  Receipt Date: 20101119
  Transmission Date: 20110411
  Serious: No
  Sender: FDA-Public Use
  Company Number: None

PATIENT
  Sex: Female

DRUGS (1)
  1. HIZENTRA [Suspect]
     Indication: IMMUNODEFICIENCY
     Dosage: 16ML BIWEEKLY SQ
     Route: 058
     Dates: start: 20100910

REACTIONS (4)
  - AKATHISIA [None]
  - ANXIETY [None]
  - RESTLESSNESS [None]
  - SWOLLEN TONGUE [None]
